FAERS Safety Report 21737649 (Version 1)
Quarter: 2022Q4

REPORT INFORMATION
  Report Type: Spontaneous
  Country: US (occurrence: US)
  Receive Date: 20221216
  Receipt Date: 20221216
  Transmission Date: 20230113
  Serious: No
  Sender: FDA-Public Use
  Company Number: US-AUROBINDO-AUR-APL-2022-013850

PATIENT
  Sex: Female

DRUGS (1)
  1. TOLTERODINE TARTRATE [Suspect]
     Active Substance: TOLTERODINE TARTRATE
     Indication: Product used for unknown indication
     Dosage: UNK
     Route: 065

REACTIONS (3)
  - Abnormal dreams [Unknown]
  - Thinking abnormal [Unknown]
  - Drug ineffective [Unknown]
